FAERS Safety Report 14680319 (Version 1)
Quarter: 2018Q1

REPORT INFORMATION
  Report Type: Spontaneous
  Country: US (occurrence: US)
  Receive Date: 20180326
  Receipt Date: 20180326
  Transmission Date: 20180509
  Serious: No
  Sender: FDA-Public Use
  Company Number: US-BIOMARINAP-US-2018-117530

PATIENT
  Age: 16 Year
  Sex: Female
  Weight: 56 kg

DRUGS (1)
  1. KUVAN [Suspect]
     Active Substance: SAPROPTERIN DIHYDROCHLORIDE
     Indication: AMINO ACID LEVEL INCREASED
     Dosage: 1100 MG, QD
     Route: 048
     Dates: start: 20180301

REACTIONS (1)
  - Haematochezia [Not Recovered/Not Resolved]

NARRATIVE: CASE EVENT DATE: 20180317
